FAERS Safety Report 7288149-X (Version None)
Quarter: 2011Q1

REPORT INFORMATION
  Report Type: 
  Country: None (occurrence: None)
  Receive Date: 20110211
  Receipt Date: 20110201
  Transmission Date: 20110831
  Serious: Yes (Hospitalization)
  Sender: FDA-Public Use
  Company Number: FR-JNJFOC-20110200561

PATIENT
  Age: 85 Year
  Sex: Male

DRUGS (12)
  1. OFLOXACIN [Suspect]
     Indication: CHOLECYSTITIS
     Route: 048
  2. FLAGYL [Suspect]
     Route: 048
  3. ACETAMINOPHEN [Concomitant]
     Route: 065
  4. TAVANIC [Suspect]
     Indication: CHOLECYSTITIS
     Route: 048
     Dates: start: 20100929, end: 20101014
  5. FLAGYL [Suspect]
     Indication: CHOLECYSTITIS
     Route: 051
  6. TRIATEC [Concomitant]
     Route: 065
  7. DILTIAZEM [Concomitant]
     Route: 065
  8. AUGMENTIN '125' [Suspect]
     Indication: URINARY TRACT INFECTION
     Route: 065
  9. ASPIRIN [Concomitant]
     Route: 065
  10. STILNOX [Concomitant]
     Route: 065
  11. ESOMEPRAZOLE [Concomitant]
     Route: 065
  12. LASIX [Concomitant]
     Route: 065

REACTIONS (3)
  - HEPATITIS CHOLESTATIC [None]
  - CYTOLYTIC HEPATITIS [None]
  - BILIARY CIRRHOSIS PRIMARY [None]
